FAERS Safety Report 23563122 (Version 3)
Quarter: 2025Q1

REPORT INFORMATION
  Report Type: Spontaneous
  Country: US (occurrence: US)
  Receive Date: 20240226
  Receipt Date: 20250222
  Transmission Date: 20250409
  Serious: No
  Sender: SANOFI AVENTIS
  Company Number: US-SANOFI-01949335

PATIENT
  Age: 67 Year
  Sex: Female

DRUGS (3)
  1. TOUJEO MAX [Suspect]
     Active Substance: INSULIN GLARGINE
     Indication: Type 2 diabetes mellitus
     Dosage: 46 IU, QD
     Route: 065
  2. TOUJEO MAX [Suspect]
     Active Substance: INSULIN GLARGINE
     Indication: Diabetes mellitus
     Dosage: 55 IU, QD
     Route: 065
  3. TRESIBA [Concomitant]
     Active Substance: INSULIN DEGLUDEC

REACTIONS (1)
  - Product storage error [Unknown]
